FAERS Safety Report 14345042 (Version 2)
Quarter: 2018Q1

REPORT INFORMATION
  Report Type: Report from Study
  Country: US (occurrence: US)
  Receive Date: 20180103
  Receipt Date: 20180223
  Transmission Date: 20180509
  Serious: Yes (Hospitalization, Other)
  Sender: FDA-Public Use
  Company Number: US-PURDUE PHARMA-USA-2017-0142175

PATIENT
  Age: 59 Year
  Sex: Male

DRUGS (3)
  1. OXYCODONE HYDROCHLORIDE. [Suspect]
     Active Substance: OXYCODONE HYDROCHLORIDE
     Indication: PAIN
     Dosage: 180 UNK, UNK
     Route: 048
  2. OXYCODONE HYDROCHLORIDE (SIMILAR TO NDA 22-272) [Suspect]
     Active Substance: OXYCODONE HYDROCHLORIDE
     Indication: BREAKTHROUGH PAIN
     Dosage: 30 MG, PRN
     Route: 048
  3. OXYCODONE HYDROCHLORIDE. [Suspect]
     Active Substance: OXYCODONE HYDROCHLORIDE
     Dosage: 60 MG, Q8H
     Route: 048

REACTIONS (31)
  - Anal incontinence [Unknown]
  - Iron deficiency [Unknown]
  - Inadequate analgesia [Unknown]
  - Lymphoedema [Unknown]
  - Vomiting [Unknown]
  - Pleural effusion [Unknown]
  - Small intestinal obstruction [Recovered/Resolved]
  - Anaemia vitamin B12 deficiency [Unknown]
  - Depression [Unknown]
  - Malaise [Unknown]
  - Oesophageal adenocarcinoma [Unknown]
  - Metastases to lung [Unknown]
  - Thoracic operation [Unknown]
  - Pleurodesis [Unknown]
  - Asthenia [Unknown]
  - Adrenal gland cancer metastatic [Unknown]
  - Chronic obstructive pulmonary disease [Unknown]
  - Off label use [Unknown]
  - Feeling abnormal [Unknown]
  - Cardiac failure congestive [Unknown]
  - Hypoxia [Unknown]
  - Dyspnoea [Unknown]
  - Abdominal pain [Unknown]
  - Diarrhoea [Unknown]
  - Weight decreased [Unknown]
  - Drug dependence [Unknown]
  - Oedema peripheral [Unknown]
  - Fatigue [Unknown]
  - Pneumonia [Recovered/Resolved]
  - Impaired gastric emptying [Unknown]
  - Folate deficiency [Unknown]

NARRATIVE: CASE EVENT DATE: 20170317
